FAERS Safety Report 16810552 (Version 1)
Quarter: 2019Q3

REPORT INFORMATION
  Report Type: Spontaneous
  Country: US (occurrence: US)
  Receive Date: 20190916
  Receipt Date: 20190916
  Transmission Date: 20191005
  Serious: Yes (Other)
  Sender: FDA-Public Use
  Company Number: US-HIKMA PHARMACEUTICALS USA INC.-US-H14001-19-04696

PATIENT
  Age: 16 Year
  Sex: Female

DRUGS (5)
  1. OXCARBAZEPINE. [Suspect]
     Active Substance: OXCARBAZEPINE
     Indication: DYSKINESIA
     Route: 065
  2. OXCARBAZEPINE. [Suspect]
     Active Substance: OXCARBAZEPINE
     Dosage: IN CLINIC FOLLOWED BY 60 MINUTES OF OBSERVATION?1-2   0.6 (DAILY)?3-4   1.2 (DAILY)?5-6   2.4 (DAILY
     Route: 065
  3. OXCARBAZEPINE. [Suspect]
     Active Substance: OXCARBAZEPINE
     Dosage: SOLUTION CONCENTRATION OF 60 MG/ML?15-16   75 (DAILY)?17-18   75 (DAILY)?19-20  75 (TWICE DAILY)?21-
     Route: 065
  4. OXCARBAZEPINE. [Suspect]
     Active Substance: OXCARBAZEPINE
     Dosage: IN CLINIC FOLLOWED BY 30 MINUTES OF OBSERVATION
     Route: 065
  5. OXCARBAZEPINE. [Suspect]
     Active Substance: OXCARBAZEPINE
     Dosage: SOLUTION CONCENTRATION OF 6 MG/ML?7-8   4.8 (DAILY)?9-10   9.6 (DAILY)?11-12   19.2 (DAILY)?13-14
     Route: 065

REACTIONS (3)
  - Pruritus [Recovered/Resolved]
  - Type IV hypersensitivity reaction [Recovered/Resolved]
  - Rash maculo-papular [Recovered/Resolved]
